FAERS Safety Report 6309703-5 (Version None)
Quarter: 2009Q3

REPORT INFORMATION
  Report Type: 
  Country: None (occurrence: None)
  Receive Date: 20090814
  Receipt Date: 20090805
  Transmission Date: 20100115
  Serious: Yes (Other)
  Sender: FDA-Public Use
  Company Number: PHEH2009US08955

PATIENT
  Sex: Male

DRUGS (1)
  1. EXJADE [Suspect]
     Dosage: 1500 MG DAIY
     Route: 048
     Dates: start: 20070105, end: 20090717

REACTIONS (1)
  - BONE MARROW DISORDER [None]
